FAERS Safety Report 21633295 (Version 2)
Quarter: 2022Q4

REPORT INFORMATION
  Report Type: Spontaneous
  Country: FI (occurrence: FI)
  Receive Date: 20221123
  Receipt Date: 20221128
  Transmission Date: 20230112
  Serious: Yes (Hospitalization, Other)
  Sender: FDA-Public Use
  Company Number: FI-GLAXOSMITHKLINE-FI2022EME172712

PATIENT

DRUGS (1)
  1. JEMPERLI [Suspect]
     Active Substance: DOSTARLIMAB-GXLY
     Indication: Endometrial cancer recurrent
     Dosage: 500 MG, EVERY THREE WEEKS.
     Dates: start: 20220715, end: 20220916

REACTIONS (10)
  - Diabetic ketoacidosis [Unknown]
  - Type 1 diabetes mellitus [Unknown]
  - Urinary tract infection [Unknown]
  - Polyuria [Unknown]
  - Dizziness [Unknown]
  - Vomiting [Unknown]
  - Blood glucose increased [Unknown]
  - Pyrexia [Unknown]
  - Arthritis [Unknown]
  - Blood ketone body increased [Unknown]
